FAERS Safety Report 19418538 (Version 1)
Quarter: 2021Q2

REPORT INFORMATION
  Report Type: Spontaneous
  Country: IR (occurrence: IR)
  Receive Date: 20210615
  Receipt Date: 20210615
  Transmission Date: 20210717
  Serious: Yes (Death, Hospitalization, Other)
  Sender: FDA-Public Use
  Company Number: IR-SLATE RUN PHARMACEUTICALS-21IR000522

PATIENT

DRUGS (8)
  1. KALETRA [Concomitant]
     Active Substance: LOPINAVIR\RITONAVIR
     Indication: COVID-19 PNEUMONIA
     Dosage: 200 MILLIGRAM, QD
     Route: 048
     Dates: start: 2020
  2. TAMIFLU [Concomitant]
     Active Substance: OSELTAMIVIR PHOSPHATE
     Indication: COVID-19 PNEUMONIA
     Dosage: 400 MILLIGRAM, Q 12 HR
     Route: 048
     Dates: start: 2020
  3. AZITHROMYCIN USP [Suspect]
     Active Substance: AZITHROMYCIN
     Indication: COVID-19 PNEUMONIA
     Dosage: 500 MILLIGRAM, Q 12 HR
     Route: 042
     Dates: start: 2020
  4. CEFTRIAXONE. [Concomitant]
     Active Substance: CEFTRIAXONE
     Indication: COVID-19 PNEUMONIA
     Dosage: 1000 MILLIGRAM, Q 12 HR
     Dates: start: 2020
  5. LEVOTHYROXINE. [Concomitant]
     Active Substance: LEVOTHYROXINE
     Indication: HYPOTHYROIDISM
     Dosage: 100 MICROGRAM, QD
  6. ACETAMINOPHEN. [Concomitant]
     Active Substance: ACETAMINOPHEN
     Indication: PRODUCT USED FOR UNKNOWN INDICATION
     Dosage: UNK
     Dates: start: 2020
  7. HYDROXYCHLOROQUINE [Concomitant]
     Active Substance: HYDROXYCHLOROQUINE
     Indication: COVID-19 PNEUMONIA
     Dosage: 400 MILLIGRAM, QD
     Dates: start: 2020
  8. AZITHROMYCIN USP [Suspect]
     Active Substance: AZITHROMYCIN
     Dosage: UNK
     Route: 048
     Dates: start: 2020, end: 2020

REACTIONS (4)
  - Respiratory failure [Unknown]
  - COVID-19 pneumonia [Fatal]
  - Maternal exposure during pregnancy [Recovered/Resolved]
  - Off label use [Unknown]

NARRATIVE: CASE EVENT DATE: 2020
